FAERS Safety Report 11314302 (Version 2)
Quarter: 2016Q2

REPORT INFORMATION
  Report Type: Spontaneous
  Country: NO (occurrence: NO)
  Receive Date: 20150727
  Receipt Date: 20160620
  Transmission Date: 20160815
  Serious: Yes (Other)
  Sender: FDA-Public Use
  Company Number: NO-GLAXOSMITHKLINE INC.-NO2015GSK106411

PATIENT
  Sex: Female

DRUGS (5)
  1. REQUIP [Suspect]
     Active Substance: ROPINIROLE HYDROCHLORIDE
     Dosage: 14 MG, UNK
     Route: 048
     Dates: start: 201001
  2. REQUIP [Suspect]
     Active Substance: ROPINIROLE HYDROCHLORIDE
     Dosage: 16 MG, UNK
     Route: 048
     Dates: start: 201009
  3. REQUIP [Suspect]
     Active Substance: ROPINIROLE HYDROCHLORIDE
     Indication: PARKINSON^S DISEASE
     Dosage: UNK
     Route: 048
     Dates: start: 200905, end: 201303
  4. MADOPAR [Concomitant]
     Active Substance: BENSERAZIDE HYDROCHLORIDE\LEVODOPA
     Indication: PARKINSON^S DISEASE
     Dosage: UNK
     Route: 048
     Dates: start: 201210
  5. ELDEPRYL [Concomitant]
     Active Substance: SELEGILINE HYDROCHLORIDE
     Indication: PARKINSON^S DISEASE
     Dosage: UNK
     Dates: start: 200606

REACTIONS (12)
  - Oedema peripheral [Unknown]
  - Affective disorder [Recovered/Resolved]
  - Listless [Unknown]
  - Fatigue [Recovered/Resolved]
  - Gambling disorder [Recovered/Resolved]
  - Personality change [Recovered/Resolved]
  - Compulsive sexual behaviour [Recovered/Resolved]
  - Mental impairment [Recovered/Resolved]
  - Abnormal behaviour [Recovered/Resolved with Sequelae]
  - Impulse-control disorder [Recovered/Resolved]
  - Derealisation [Recovered/Resolved]
  - Disturbance in attention [Recovered/Resolved]

NARRATIVE: CASE EVENT DATE: 2010
